FAERS Safety Report 4301191-3 (Version None)
Quarter: 2004Q1

REPORT INFORMATION
  Report Type: 
  Country: None (occurrence: None)
  Receive Date: 20040218
  Receipt Date: 20040107
  Transmission Date: 20041129
  Serious: No
  Sender: FDA-Public Use
  Company Number: 2004-01-0199

PATIENT
  Age: 85 Year
  Sex: Female
  Weight: 51.7101 kg

DRUGS (4)
  1. PEG-INTRON [Suspect]
     Indication: HEPATITIS C
     Dosage: QWK
     Route: 058
     Dates: start: 20031015, end: 20031230
  2. REBETOL [Suspect]
     Indication: HEPATITIS C
     Dosage: 800-200 MG/D*
     Route: 048
     Dates: start: 20031015, end: 20031230
  3. DETROL [Concomitant]
  4. AMOXICILLIN [Concomitant]

REACTIONS (7)
  - ANOREXIA [None]
  - FATIGUE [None]
  - GASTROINTESTINAL DISORDER [None]
  - INSOMNIA [None]
  - PRURITUS [None]
  - STOMATITIS [None]
  - WEIGHT DECREASED [None]
